FAERS Safety Report 6157403-7 (Version None)
Quarter: 2009Q2

REPORT INFORMATION
  Report Type: 
  Country: None (occurrence: None)
  Receive Date: 20090416
  Receipt Date: 20090416
  Transmission Date: 20091009
  Serious: Yes (Other)
  Sender: FDA-Public Use
  Company Number: US-PFIZER INC-2009186358

PATIENT
  Sex: Female
  Weight: 122.45 kg

DRUGS (4)
  1. LYRICA [Suspect]
     Indication: FIBROMYALGIA
     Dosage: UNK
     Dates: end: 20080101
  2. COREG [Concomitant]
     Dosage: UNK
  3. ASACOL [Concomitant]
     Dosage: UNK
  4. ALL OTHER THERAPEUTIC PRODUCTS [Concomitant]

REACTIONS (2)
  - CATARACT [None]
  - VISION BLURRED [None]
